FAERS Safety Report 7660638-5 (Version None)
Quarter: 2011Q3

REPORT INFORMATION
  Report Type: 
  Country: None (occurrence: None)
  Receive Date: 20110805
  Receipt Date: 20101118
  Transmission Date: 20111222
  Serious: No
  Sender: FDA-Public Use
  Company Number: US-ABBOTT-10P-163-0686966-00

PATIENT
  Sex: Female
  Weight: 81.72 kg

DRUGS (15)
  1. VITAMIN B-12 [Concomitant]
     Indication: PRODUCT USED FOR UNKNOWN INDICATION
  2. LISINOPRIL [Concomitant]
     Indication: HYPERTENSION
  3. NIASPAN [Suspect]
     Indication: BLOOD CHOLESTEROL INCREASED
     Dates: start: 20101116, end: 20101116
  4. POTASSIUM [Concomitant]
     Indication: MINERAL SUPPLEMENTATION
  5. VITAMIN D [Concomitant]
     Indication: PRODUCT USED FOR UNKNOWN INDICATION
  6. VENASTAT [Concomitant]
     Indication: POOR PERIPHERAL CIRCULATION
  7. PROPRANOLOL [Concomitant]
     Indication: HEADACHE
  8. FUROSEMIDE [Concomitant]
     Indication: FLUID RETENTION
  9. FLEXERIL [Concomitant]
     Indication: FIBROMYALGIA
  10. MALIC ACID WITH MAGNESIUM [Concomitant]
     Indication: PRODUCT USED FOR UNKNOWN INDICATION
  11. PROVERA [Concomitant]
     Indication: MENSTRUATION IRREGULAR
  12. XANAX [Concomitant]
     Indication: SLEEP DISORDER THERAPY
  13. FISH OIL [Concomitant]
     Indication: PRODUCT USED FOR UNKNOWN INDICATION
  14. CALCIUM ACETATE [Concomitant]
     Indication: PRODUCT USED FOR UNKNOWN INDICATION
  15. MELATONIN [Concomitant]
     Indication: PRODUCT USED FOR UNKNOWN INDICATION

REACTIONS (4)
  - FATIGUE [None]
  - MYALGIA [None]
  - NAUSEA [None]
  - ASTHENIA [None]
